FAERS Safety Report 13835206 (Version 2)
Quarter: 2017Q3

REPORT INFORMATION
  Report Type: Spontaneous
  Country: CA (occurrence: CA)
  Receive Date: 20170804
  Receipt Date: 20170811
  Transmission Date: 20171127
  Serious: Yes (Hospitalization)
  Sender: FDA-Public Use
  Company Number: CA-PFIZER INC-2017335973

PATIENT
  Age: 34 Year
  Sex: Male

DRUGS (3)
  1. FENTANYL CITRATE. [Suspect]
     Active Substance: FENTANYL CITRATE
     Dosage: 75 UG, UNK
     Route: 042
  2. MIDAZOLAM [Suspect]
     Active Substance: MIDAZOLAM HYDROCHLORIDE
     Dosage: 3 MG, UNK
     Route: 042
  3. PREDNISONE. [Suspect]
     Active Substance: PREDNISONE
     Dosage: 50 MG, 1X/DAY
     Dates: start: 20170724

REACTIONS (1)
  - Nephrolithiasis [Recovered/Resolved]
